FAERS Safety Report 22219277 (Version 2)
Quarter: 2023Q2

REPORT INFORMATION
  Report Type: Spontaneous
  Country: JP (occurrence: None)
  Receive Date: 20230417
  Receipt Date: 20230425
  Transmission Date: 20230721
  Serious: No
  Sender: FDA-Public Use
  Company Number: 2023A086661

PATIENT
  Age: 82 Year
  Sex: Male

DRUGS (3)
  1. ONDEXXYA [Suspect]
     Active Substance: ANDEXANET ALFA
     Indication: Pulmonary alveolar haemorrhage
     Dosage: 400 MG IV AT 30 MG/MIN, FOLLOWED BY 480 MG IV AT 4 MG/MIN FOR 2 HOURS 880.0MG UNKNOWN
     Route: 042
     Dates: start: 20230412, end: 20230412
  2. WARFARIN [Concomitant]
     Active Substance: WARFARIN
     Dosage: DOSE UNKNOWN
  3. ASPIRIN [Concomitant]
     Active Substance: ASPIRIN
     Dosage: DOSE UNKNOWN

REACTIONS (1)
  - No adverse event [Unknown]
